FAERS Safety Report 20282102 (Version 1)
Quarter: 2022Q1

REPORT INFORMATION
  Report Type: Spontaneous
  Country: DE (occurrence: DE)
  Receive Date: 20220103
  Receipt Date: 20220103
  Transmission Date: 20220423
  Serious: Yes (Hospitalization)
  Sender: FDA-Public Use
  Company Number: DE-ADRED-07596-01

PATIENT
  Age: 55 Year
  Sex: Male

DRUGS (8)
  1. TORSEMIDE [Suspect]
     Active Substance: TORSEMIDE
     Indication: Product used for unknown indication
     Dosage: 10 MILLIGRAM, QD (10 MG, 1-0-0-0, TABLETTEN)
     Route: 048
  2. RAMIPRIL [Suspect]
     Active Substance: RAMIPRIL
     Indication: Product used for unknown indication
     Dosage: 5 MILLIGRAM, BID (5 MG, 1-0-1-0, TABLETTEN)
     Route: 048
  3. EPLERENONE [Suspect]
     Active Substance: EPLERENONE
     Indication: Product used for unknown indication
     Dosage: 50 MILLIGRAM, BID (50 MG, 1-0-1-0, TABLETTEN)
     Route: 048
  4. ALFACALCIDOL [Concomitant]
     Active Substance: ALFACALCIDOL
     Dosage: 0.25 MICROGRAM, QD (0.25 ?G, 0-0-1-0, KAPSELN)
     Route: 048
  5. CLONIDINE [Concomitant]
     Active Substance: CLONIDINE
     Dosage: 0.25 MILLIGRAM, QD (0.25 MG, 1-0-0-0, RETARD-KAPSELN)
     Route: 048
  6. METOPROLOL [Concomitant]
     Active Substance: METOPROLOL
     Dosage: 95 MILLIGRAM, BID (95 MG, 1-0-1-0, RETARD-TABLETTEN)
     Route: 048
  7. KALIUMIODID BC [Concomitant]
     Dosage: 0.1 MILLIGRAM, QD (0.1 MG, 0-0-1-0, TABLETTEN)
     Route: 048
  8. AMLODIPINE BESYLATE [Concomitant]
     Active Substance: AMLODIPINE BESYLATE
     Dosage: 10 MILLIGRAM, QD (10 MG, 0-0-1-0, TABLETTEN)
     Route: 048

REACTIONS (2)
  - Acute kidney injury [Recovering/Resolving]
  - Urinary retention [Recovering/Resolving]

NARRATIVE: CASE EVENT DATE: 20210323
